FAERS Safety Report 19787192 (Version 1)
Quarter: 2021Q3

REPORT INFORMATION
  Report Type: Spontaneous
  Country: US (occurrence: US)
  Receive Date: 20210903
  Receipt Date: 20210903
  Transmission Date: 20211014
  Serious: Yes (Hospitalization)
  Sender: FDA-Public Use
  Company Number: US-SAGENT PHARMACEUTICALS-2021SAG001906

PATIENT

DRUGS (2)
  1. DOXORUBICIN HCL [Suspect]
     Active Substance: DOXORUBICIN HYDROCHLORIDE
     Indication: OVARIAN EPITHELIAL CANCER
     Dosage: UNK
  2. MOTOLIMOD. [Suspect]
     Active Substance: MOTOLIMOD
     Indication: OVARIAN EPITHELIAL CANCER
     Dosage: UNK

REACTIONS (1)
  - Toxic erythema of chemotherapy [Recovering/Resolving]
